FAERS Safety Report 8149928-X (Version None)
Quarter: 2012Q1

REPORT INFORMATION
  Report Type: 
  Country: None (occurrence: None)
  Receive Date: 20120218
  Receipt Date: 20111216
  Transmission Date: 20120608
  Serious: No
  Sender: FDA-Public Use
  Company Number: US-ALLERGAN-1116519US

PATIENT
  Sex: Male

DRUGS (1)
  1. BOTULINUM TOXIN TYPE A [Suspect]
     Indication: THERAPEUTIC PROCEDURE
     Dosage: UNK
     Route: 030
     Dates: start: 20111101, end: 20111101

REACTIONS (5)
  - CHILLS [None]
  - CONTUSION [None]
  - PYREXIA [None]
  - INJECTION SITE PAIN [None]
  - PAIN [None]
